FAERS Safety Report 24546202 (Version 3)
Quarter: 2025Q1

REPORT INFORMATION
  Report Type: Spontaneous
  Country: NZ (occurrence: NZ)
  Receive Date: 20241024
  Receipt Date: 20250210
  Transmission Date: 20250409
  Serious: Yes (Other)
  Sender: MYLAN
  Company Number: NZ-MYLANLABS-2024M1094090

PATIENT
  Age: 68 Year
  Sex: Female

DRUGS (1)
  1. CLOZARIL [Suspect]
     Active Substance: CLOZAPINE
     Indication: Schizophrenia
     Route: 048
     Dates: start: 20130919

REACTIONS (2)
  - Neutrophilia [Not Recovered/Not Resolved]
  - Leukocytosis [Not Recovered/Not Resolved]

NARRATIVE: CASE EVENT DATE: 20241014
